FAERS Safety Report 12632947 (Version 2)
Quarter: 2016Q3

REPORT INFORMATION
  Report Type: Spontaneous
  Country: US (occurrence: US)
  Receive Date: 20160808
  Receipt Date: 20160808
  Transmission Date: 20161109
  Serious: No
  Sender: FDA-Public Use
  Company Number: US-BEH-2016057706

PATIENT
  Sex: Female
  Weight: 76 kg

DRUGS (20)
  1. HIZENTRA [Suspect]
     Active Substance: HUMAN IMMUNOGLOBULIN G
     Indication: IMMUNODEFICIENCY COMMON VARIABLE
     Route: 058
  2. MEDROL [Concomitant]
     Active Substance: METHYLPREDNISOLONE
  3. CHROMIUM PICOLINATE [Concomitant]
     Active Substance: CHROMIUM PICOLINATE
  4. GLUTAMINE [Concomitant]
     Active Substance: GLUTAMINE
  5. AMINO ACIDS [Concomitant]
     Active Substance: AMINO ACIDS
  6. EPIPEN [Concomitant]
     Active Substance: EPINEPHRINE
  7. FISH OIL OMEGA 3 [Concomitant]
  8. LIDOCAINE. [Concomitant]
     Active Substance: LIDOCAINE
  9. DIPHENHYDRAMINE. [Concomitant]
     Active Substance: DIPHENHYDRAMINE
  10. PROTEIN SUPPLEMENTS [Concomitant]
     Active Substance: PROTEIN
  11. FLONASE [Concomitant]
     Active Substance: FLUTICASONE PROPIONATE
  12. METROCREAM [Concomitant]
     Active Substance: METRONIDAZOLE
  13. MULTIVITAMIN [Concomitant]
     Active Substance: VITAMINS
  14. ACETAMINOPHEN. [Concomitant]
     Active Substance: ACETAMINOPHEN
  15. DEMEROL [Concomitant]
     Active Substance: MEPERIDINE HYDROCHLORIDE
  16. PHENERGAN [Concomitant]
     Active Substance: PROMETHAZINE HYDROCHLORIDE
  17. BROMELAINS [Concomitant]
     Active Substance: BROMELAINS
  18. LIDOCAINE/PRILOCAINE [Concomitant]
     Active Substance: LIDOCAINE\PRILOCAINE
  19. LMX [Concomitant]
     Active Substance: LIDOCAINE
  20. NYSTATIN. [Concomitant]
     Active Substance: NYSTATIN

REACTIONS (3)
  - Infusion site nodule [Unknown]
  - Infusion site oedema [Unknown]
  - Infusion site haemorrhage [Unknown]
